FAERS Safety Report 24264693 (Version 1)
Quarter: 2024Q3

REPORT INFORMATION
  Report Type: Spontaneous
  Country: ES (occurrence: ES)
  Receive Date: 20240829
  Receipt Date: 20240829
  Transmission Date: 20241017
  Serious: Yes (Hospitalization, Other)
  Sender: ACCORD
  Company Number: None

PATIENT
  Age: 50 Year
  Sex: Male
  Weight: 84 kg

DRUGS (7)
  1. OXALIPLATIN [Suspect]
     Active Substance: OXALIPLATIN
     Indication: Adenocarcinoma of colon
     Dosage: FIRST CYCLE 20/05/2024 SECOND CYCLE 10/06/2024
     Dates: start: 20240520
  2. SERTRALINE [Concomitant]
     Active Substance: SERTRALINE HYDROCHLORIDE
  3. ENOXAPARIN SODIUM [Concomitant]
     Active Substance: ENOXAPARIN SODIUM
     Dosage: STRENGTH:  4,000 IU (40 MG)/ 0.4 ML, SOLUTION FOR INJECTION IN PREFILLED SYRINGE
  4. QUETIAPINE [Concomitant]
     Active Substance: QUETIAPINE
     Dosage: STRENGTH: 25 MG
  5. ZYPREXA [Concomitant]
     Active Substance: OLANZAPINE
     Dosage: STRENGTH: 2.5 MG
  6. LORAZEPAM [Concomitant]
     Active Substance: LORAZEPAM
  7. ONDANSETRON [Concomitant]
     Active Substance: ONDANSETRON
     Dosage: STRENGTH: 8MG

REACTIONS (5)
  - Jaundice [Recovered/Resolved]
  - Nausea [Recovered/Resolved]
  - Liver function test abnormal [Recovered/Resolved]
  - Malaise [Recovered/Resolved]
  - Pyrexia [Recovered/Resolved]

NARRATIVE: CASE EVENT DATE: 20240617
